FAERS Safety Report 15235178 (Version 1)
Quarter: 2018Q3

REPORT INFORMATION
  Report Type: Report from Study
  Country: JP (occurrence: JP)
  Receive Date: 20180803
  Receipt Date: 20180803
  Transmission Date: 20181010
  Serious: Yes (Other)
  Sender: FDA-Public Use
  Company Number: JP-AMGEN-JPNNI2018105930

PATIENT
  Age: 71 Year
  Sex: Male

DRUGS (40)
  1. DEXAMETHASONE. [Concomitant]
     Active Substance: DEXAMETHASONE
     Dosage: UNK
     Dates: start: 20170927, end: 20170928
  2. DEXAMETHASONE. [Concomitant]
     Active Substance: DEXAMETHASONE
     Dosage: UNK
     Dates: start: 20171018, end: 20171019
  3. DEXAMETHASONE. [Concomitant]
     Active Substance: DEXAMETHASONE
     Dosage: UNK
     Dates: start: 20180131, end: 20180201
  4. CARFILZOMIB [Suspect]
     Active Substance: CARFILZOMIB
     Dosage: 45 MG/M2, UNK
     Route: 041
     Dates: start: 20171129, end: 20171130
  5. DEXAMETHASONE. [Concomitant]
     Active Substance: DEXAMETHASONE
     Dosage: UNK
     Dates: start: 20180221, end: 20180222
  6. ACICLOVIR [Concomitant]
     Active Substance: ACYCLOVIR
     Dosage: UNK
  7. CARFILZOMIB [Suspect]
     Active Substance: CARFILZOMIB
     Dosage: 45 MG/M2, UNK
     Route: 041
     Dates: start: 20171220, end: 20171221
  8. CARFILZOMIB [Suspect]
     Active Substance: CARFILZOMIB
     Dosage: 45 MG/M2, UNK
     Route: 041
     Dates: start: 20171227, end: 20171228
  9. CARFILZOMIB [Suspect]
     Active Substance: CARFILZOMIB
     Dosage: 45 MG/M2, UNK
     Route: 041
     Dates: start: 20180117, end: 20180118
  10. DEXAMETHASONE. [Concomitant]
     Active Substance: DEXAMETHASONE
     Dosage: UNK
     Dates: start: 20171122, end: 20171123
  11. DEXAMETHASONE. [Concomitant]
     Active Substance: DEXAMETHASONE
     Dosage: UNK
     Dates: start: 20171129, end: 20171130
  12. DEXAMETHASONE. [Concomitant]
     Active Substance: DEXAMETHASONE
     Dosage: UNK
     Dates: start: 20180117, end: 20180118
  13. DEXAMETHASONE. [Concomitant]
     Active Substance: DEXAMETHASONE
     Dosage: UNK
     Dates: start: 20180124, end: 20180125
  14. DEXAMETHASONE. [Concomitant]
     Active Substance: DEXAMETHASONE
     Dosage: UNK
     Dates: start: 20180307, end: 20180308
  15. CARFILZOMIB [Suspect]
     Active Substance: CARFILZOMIB
     Dosage: 45 MG/M2, UNK
     Route: 041
     Dates: start: 20171011, end: 20171012
  16. CARFILZOMIB [Suspect]
     Active Substance: CARFILZOMIB
     Dosage: 45 MG/M2, UNK
     Route: 041
     Dates: start: 20171025, end: 20171026
  17. CARFILZOMIB [Suspect]
     Active Substance: CARFILZOMIB
     Dosage: 45 MG/M2, UNK
     Route: 041
     Dates: start: 20180228, end: 20180301
  18. DEXAMETHASONE. [Concomitant]
     Active Substance: DEXAMETHASONE
     Dosage: UNK
     Dates: start: 20170920, end: 20170921
  19. CARFILZOMIB [Suspect]
     Active Substance: CARFILZOMIB
     Dosage: 56 MG/M2, UNK
     Route: 041
     Dates: start: 20170920, end: 20170921
  20. CARFILZOMIB [Suspect]
     Active Substance: CARFILZOMIB
     Dosage: 45 MG/M2, UNK
     Route: 041
     Dates: start: 20171213, end: 20171214
  21. CARFILZOMIB [Suspect]
     Active Substance: CARFILZOMIB
     Dosage: 45 MG/M2, UNK
     Route: 041
     Dates: start: 20180221, end: 20180222
  22. DEXAMETHASONE. [Concomitant]
     Active Substance: DEXAMETHASONE
     Dosage: UNK
     Dates: start: 20171011, end: 20171012
  23. DEXAMETHASONE. [Concomitant]
     Active Substance: DEXAMETHASONE
     Dosage: UNK
     Dates: start: 20180207, end: 20180208
  24. DEXAMETHASONE. [Concomitant]
     Active Substance: DEXAMETHASONE
     Dosage: UNK
     Dates: start: 20180228, end: 20180301
  25. DEXAMETHASONE. [Concomitant]
     Active Substance: DEXAMETHASONE
     Dosage: UNK
     Dates: start: 20171220, end: 20171221
  26. DEXAMETHASONE. [Concomitant]
     Active Substance: DEXAMETHASONE
     Dosage: UNK
     Dates: start: 20171227, end: 20171228
  27. DEXAMETHASONE. [Concomitant]
     Active Substance: DEXAMETHASONE
     Dosage: UNK
     Dates: start: 20180214, end: 20180215
  28. CARFILZOMIB [Suspect]
     Active Substance: CARFILZOMIB
     Indication: PLASMA CELL MYELOMA
     Dosage: 20 MG/M2, UNK
     Route: 041
     Dates: start: 20170913, end: 20170914
  29. CARFILZOMIB [Suspect]
     Active Substance: CARFILZOMIB
     Dosage: 45 MG/M2, UNK
     Route: 041
     Dates: start: 20170927, end: 20170928
  30. CARFILZOMIB [Suspect]
     Active Substance: CARFILZOMIB
     Dosage: 45 MG/M2, UNK
     Route: 041
     Dates: start: 20171115, end: 20171116
  31. CARFILZOMIB [Suspect]
     Active Substance: CARFILZOMIB
     Dosage: 45 MG/M2, UNK
     Route: 041
     Dates: start: 20180124, end: 20180125
  32. CARFILZOMIB [Suspect]
     Active Substance: CARFILZOMIB
     Dosage: 45 MG/M2, UNK
     Route: 041
     Dates: start: 20180214, end: 20180215
  33. DEXAMETHASONE. [Concomitant]
     Active Substance: DEXAMETHASONE
     Dosage: UNK
     Dates: start: 20171004, end: 20171005
  34. DEXAMETHASONE. [Concomitant]
     Active Substance: DEXAMETHASONE
     Dosage: UNK
     Dates: start: 20171025, end: 20171026
  35. CARFILZOMIB [Suspect]
     Active Substance: CARFILZOMIB
     Dosage: 45 MG/M2, UNK
     Route: 041
     Dates: start: 20171018, end: 20171019
  36. CARFILZOMIB [Suspect]
     Active Substance: CARFILZOMIB
     Dosage: 45 MG/M2, UNK
     Route: 041
     Dates: start: 20171122, end: 20171122
  37. CARFILZOMIB [Suspect]
     Active Substance: CARFILZOMIB
     Dosage: 45 MG/M2, UNK
     Route: 041
     Dates: start: 20180131, end: 20180201
  38. DEXAMETHASONE. [Concomitant]
     Active Substance: DEXAMETHASONE
     Dosage: UNK
     Dates: start: 20170913, end: 20170914
  39. DEXAMETHASONE. [Concomitant]
     Active Substance: DEXAMETHASONE
     Dosage: UNK
     Dates: start: 20171115, end: 20171116
  40. DEXAMETHASONE. [Concomitant]
     Active Substance: DEXAMETHASONE
     Dosage: UNK
     Dates: start: 20171213, end: 20171214

REACTIONS (3)
  - Hypertension [Recovered/Resolved]
  - Platelet count decreased [Recovered/Resolved]
  - Enterocolitis infectious [Recovered/Resolved]

NARRATIVE: CASE EVENT DATE: 20170921
